FAERS Safety Report 8143403-4 (Version None)
Quarter: 2012Q1

REPORT INFORMATION
  Report Type: 
  Country: None (occurrence: None)
  Receive Date: 20120217
  Receipt Date: 20120207
  Transmission Date: 20120608
  Serious: Yes (Other)
  Sender: FDA-Public Use
  Company Number: GB-JNJFOC-20111204128

PATIENT
  Sex: Male

DRUGS (9)
  1. INFUMORPH [Concomitant]
     Indication: PAIN
     Route: 065
  2. LACTULOSE [Concomitant]
     Indication: CONSTIPATION
     Route: 065
  3. OMEPRAZOLE [Concomitant]
     Indication: DYSPEPSIA
     Route: 065
  4. ATORVASTATIN [Concomitant]
     Indication: LIPIDS INCREASED
     Route: 065
  5. CALCIUM AND VITAMIN D [Concomitant]
     Indication: PROPHYLAXIS
     Route: 065
  6. PARACETAMOL [Concomitant]
     Indication: PAIN
     Route: 065
  7. IBUPROFEN [Concomitant]
     Indication: PAIN
     Route: 065
  8. PREDNISOLONE [Concomitant]
     Indication: INCREASED APPETITE
     Route: 065
  9. ZYTIGA [Suspect]
     Indication: PROSTATE CANCER METASTATIC
     Route: 048
     Dates: start: 20111025

REACTIONS (2)
  - GAMMA-GLUTAMYLTRANSFERASE INCREASED [None]
  - BLOOD ALKALINE PHOSPHATASE INCREASED [None]
